FAERS Safety Report 14171167 (Version 2)
Quarter: 2017Q4

REPORT INFORMATION
  Report Type: Spontaneous
  Country: FR (occurrence: FR)
  Receive Date: 20171108
  Receipt Date: 20171129
  Transmission Date: 20180321
  Serious: Yes (Other)
  Sender: FDA-Public Use
  Company Number: FR-MERCK KGAA-2033555

PATIENT
  Sex: Female

DRUGS (2)
  1. LEVOTHYROXINE. [Suspect]
     Active Substance: LEVOTHYROXINE
  2. NOVOTHYROX [Suspect]
     Active Substance: LEVOTHYROXINE SODIUM
     Indication: PRODUCT USED FOR UNKNOWN INDICATION
     Dates: start: 201709, end: 201709

REACTIONS (18)
  - Suicidal ideation [None]
  - Pain [None]
  - Eating disorder [None]
  - Disturbance in attention [None]
  - Loss of personal independence in daily activities [None]
  - Hair colour changes [None]
  - Psychomotor hyperactivity [None]
  - Weight decreased [None]
  - Decreased appetite [None]
  - Blood thyroid stimulating hormone abnormal [None]
  - Amnesia [None]
  - Vertigo [None]
  - Impaired driving ability [None]
  - Disorientation [None]
  - Scratch [None]
  - Fatigue [None]
  - Alopecia [None]
  - Insomnia [None]

NARRATIVE: CASE EVENT DATE: 201709
